FAERS Safety Report 21197795 (Version 1)
Quarter: 2022Q3

REPORT INFORMATION
  Report Type: Report from Study
  Country: FR (occurrence: FR)
  Receive Date: 20220810
  Receipt Date: 20220810
  Transmission Date: 20221027
  Serious: Yes (Life-Threatening, Hospitalization)
  Sender: FDA-Public Use
  Company Number: FR-GILEAD-2022-0592993

PATIENT
  Age: 72 Year
  Sex: Male
  Weight: 86 kg

DRUGS (5)
  1. BREXUCABTAGENE AUTOLEUCEL [Suspect]
     Active Substance: BREXUCABTAGENE AUTOLEUCEL
     Indication: Mantle cell lymphoma
     Route: 042
  2. FLUDARABINE [Suspect]
     Active Substance: FLUDARABINE PHOSPHATE
     Indication: Bone marrow conditioning regimen
     Dosage: 60 (NO UNITS PROVIDED)
     Route: 042
     Dates: start: 20220727, end: 20220729
  3. CYCLOPHOSPHAMIDE [Suspect]
     Active Substance: CYCLOPHOSPHAMIDE
     Indication: Bone marrow conditioning regimen
     Dosage: 1000 (NO UNITS PROVIDED)
     Route: 042
     Dates: start: 20220727, end: 20220729
  4. MESNA [Suspect]
     Active Substance: MESNA
     Indication: Prophylaxis
     Dosage: 666 (NO UNITS)
     Route: 042
     Dates: start: 20220727, end: 20220729
  5. DEXAMETHASONE [Concomitant]
     Active Substance: DEXAMETHASONE
     Dosage: 20,MG,DAILY
     Route: 048
     Dates: start: 20220719

REACTIONS (1)
  - Cytokine release syndrome [Not Recovered/Not Resolved]

NARRATIVE: CASE EVENT DATE: 20220802
